FAERS Safety Report 18465166 (Version 5)
Quarter: 2021Q2

REPORT INFORMATION
  Report Type: Report from Study
  Country: US (occurrence: US)
  Receive Date: 20201104
  Receipt Date: 20210416
  Transmission Date: 20210717
  Serious: No
  Sender: FDA-Public Use
  Company Number: US-TAKEDA-2020TUS047218

PATIENT
  Age: 46 Year
  Sex: Female
  Weight: 63 kg

DRUGS (19)
  1. HUMAN NORMAL IMMUNOGLOBULIN; LIQUID [Suspect]
     Active Substance: HUMAN IMMUNOGLOBULIN G
     Dosage: 25 GRAM, Q4WEEKS
     Route: 042
     Dates: start: 20200511
  2. DIPHENHYDRAMINE. [Concomitant]
     Active Substance: DIPHENHYDRAMINE
  3. HYDROCORTISONE. [Concomitant]
     Active Substance: HYDROCORTISONE
  4. HYDROXYZINE [Concomitant]
     Active Substance: HYDROXYZINE HYDROCHLORIDE
  5. ACETAMINOPHEN. [Concomitant]
     Active Substance: ACETAMINOPHEN
  6. DEXTROSE. [Concomitant]
     Active Substance: DEXTROSE
  7. SODIUM CHLORIDE. [Concomitant]
     Active Substance: SODIUM CHLORIDE
  8. NAUZENE [CYCLIZINE HYDROCHLORIDE] [Concomitant]
     Active Substance: CYCLIZINE HYDROCHLORIDE
  9. ESCITALOPRAM OXALATE. [Concomitant]
     Active Substance: ESCITALOPRAM OXALATE
  10. HUMAN NORMAL IMMUNOGLOBULIN; LIQUID [Suspect]
     Active Substance: HUMAN IMMUNOGLOBULIN G
     Dosage: 25 GRAM, Q4WEEKS
     Route: 042
     Dates: start: 20201025
  11. EPINEPHRINE. [Concomitant]
     Active Substance: EPINEPHRINE
  12. CLARITIN [CLARITHROMYCIN] [Concomitant]
     Active Substance: CLARITHROMYCIN
  13. LORATADINE. [Concomitant]
     Active Substance: LORATADINE
  14. IBUPROFEN. [Concomitant]
     Active Substance: IBUPROFEN
  15. LIDOCAINE. [Concomitant]
     Active Substance: LIDOCAINE
  16. NUVARING [Concomitant]
     Active Substance: ETHINYL ESTRADIOL\ETONOGESTREL
  17. HUMAN NORMAL IMMUNOGLOBULIN; LIQUID [Suspect]
     Active Substance: HUMAN IMMUNOGLOBULIN G
     Indication: IMMUNODEFICIENCY COMMON VARIABLE
     Dosage: 15 GRAM, Q4WEEKS
     Route: 042
     Dates: start: 20200511
  18. NORMAL SALINE [Concomitant]
     Active Substance: SODIUM CHLORIDE
  19. AMITRIPTYLINE [Concomitant]
     Active Substance: AMITRIPTYLINE

REACTIONS (7)
  - Condition aggravated [Unknown]
  - Fatigue [Unknown]
  - Feeling abnormal [Unknown]
  - Pyrexia [Unknown]
  - Infusion related reaction [Unknown]
  - Adverse drug reaction [Unknown]
  - Headache [Unknown]

NARRATIVE: CASE EVENT DATE: 20201215
